FAERS Safety Report 9959178 (Version 2)
Quarter: 2014Q1

REPORT INFORMATION
  Report Type: Report from Study
  Country: US (occurrence: US)
  Receive Date: 20140305
  Receipt Date: 20140305
  Transmission Date: 20141002
  Serious: No
  Sender: FDA-Public Use
  Company Number: US-ABBVIE-13P-163-1091519-00

PATIENT
  Age: 21 Year
  Sex: Female

DRUGS (6)
  1. HUMIRA [Suspect]
     Indication: COLITIS ULCERATIVE
     Dates: start: 20130326
  2. HUMIRA [Suspect]
     Dates: end: 20130530
  3. STEROIDS [Suspect]
     Indication: COLITIS ULCERATIVE
     Dates: start: 20130508
  4. AZATHIOPRINE [Concomitant]
     Indication: COLITIS ULCERATIVE
  5. QUASENSE [Concomitant]
     Indication: VITAMIN SUPPLEMENTATION
     Dosage: 0.15-0.03MG DAILY
  6. FLORASTOR [Concomitant]
     Indication: VITAMIN SUPPLEMENTATION

REACTIONS (4)
  - Stress [Recovering/Resolving]
  - Colitis ulcerative [Recovering/Resolving]
  - Drug ineffective [Not Recovered/Not Resolved]
  - Diarrhoea haemorrhagic [Recovering/Resolving]
